FAERS Safety Report 23314341 (Version 1)
Quarter: 2023Q4

REPORT INFORMATION
  Report Type: Spontaneous
  Country: US (occurrence: US)
  Receive Date: 20231219
  Receipt Date: 20231219
  Transmission Date: 20240110
  Serious: No
  Sender: FDA-Public Use
  Company Number: US-ABBVIE-2308292US

PATIENT

DRUGS (4)
  1. BOTOX [Suspect]
     Active Substance: ONABOTULINUMTOXINA
     Indication: Product used for unknown indication
     Dosage: TIME INTERVAL: AS NECESSARY: DOSE DESC: UNK, SINGLE
     Dates: start: 202302, end: 202302
  2. QULIPTA [Concomitant]
     Active Substance: ATOGEPANT
     Dosage: DOSE DESC: UNK
  3. NURTEC ODT [Concomitant]
     Active Substance: RIMEGEPANT SULFATE
  4. AJOVY [Concomitant]
     Active Substance: FREMANEZUMAB-VFRM
     Dosage: DOSE DESC: UNK

REACTIONS (2)
  - Therapeutic product effect decreased [Unknown]
  - Hypersensitivity [Unknown]
